FAERS Safety Report 5267108-2 (Version None)
Quarter: 2007Q1

REPORT INFORMATION
  Report Type: 
  Country: None (occurrence: None)
  Receive Date: 20070316
  Receipt Date: 20070302
  Transmission Date: 20070707
  Serious: Yes (Hospitalization)
  Sender: FDA-Public Use
  Company Number: JP-NOVOPROD-261737

PATIENT
  Age: 6 Year
  Sex: Male
  Weight: 15 kg

DRUGS (2)
  1. NORDITROPIN NORDIFLEX [Suspect]
     Indication: GROWTH HORMONE DEFICIENCY
     Dosage: 2.45 MG, QW
     Route: 058
     Dates: start: 20051216
  2. ALFACALCIDOL [Concomitant]
     Dosage: .1 UG, QD
     Dates: start: 20051219

REACTIONS (1)
  - ENDOCARDITIS [None]
